FAERS Safety Report 22394467 (Version 1)
Quarter: 2023Q2

REPORT INFORMATION
  Report Type: Spontaneous
  Country: US (occurrence: None)
  Receive Date: 20230531
  Receipt Date: 20230531
  Transmission Date: 20230722
  Serious: Yes (Other)
  Sender: FDA-Public Use
  Company Number: None

PATIENT
  Age: 65 Year
  Sex: Female

DRUGS (1)
  1. TAFINLAR [Suspect]
     Active Substance: DABRAFENIB MESYLATE
     Indication: Anaplastic thyroid cancer
     Dosage: 1 CAPSULE TWICE A DAY ORALLY?
     Route: 048
     Dates: start: 20230501

REACTIONS (9)
  - Rash [None]
  - Arthralgia [None]
  - Arthralgia [None]
  - Paraesthesia [None]
  - Tenderness [None]
  - Gait disturbance [None]
  - Fatigue [None]
  - Somnolence [None]
  - Dehydration [None]

NARRATIVE: CASE EVENT DATE: 20230501
